FAERS Safety Report 14720995 (Version 5)
Quarter: 2018Q2

REPORT INFORMATION
  Report Type: Spontaneous
  Country: FR (occurrence: FR)
  Receive Date: 20180405
  Receipt Date: 20180625
  Transmission Date: 20180711
  Serious: Yes (Disabling, Other)
  Sender: FDA-Public Use
  Company Number: PHHY2008FR047016

PATIENT
  Age: 2 Year
  Sex: Male
  Weight: 15 kg

DRUGS (7)
  1. NELFINAVIR [Suspect]
     Active Substance: NELFINAVIR
     Indication: FOETAL EXPOSURE DURING PREGNANCY
     Dosage: UNK
     Route: 064
  2. NEVIRAPINE. [Suspect]
     Active Substance: NEVIRAPINE
     Indication: FOETAL EXPOSURE DURING PREGNANCY
     Dosage: UNK
     Route: 064
  3. DIDANOSINE. [Suspect]
     Active Substance: DIDANOSINE
     Indication: FOETAL EXPOSURE DURING PREGNANCY
     Dosage: UNK
     Route: 064
  4. LAMIVUDINE. [Suspect]
     Active Substance: LAMIVUDINE
     Indication: FOETAL EXPOSURE DURING PREGNANCY
     Dosage: UNK
     Route: 064
  5. RITONAVIR. [Suspect]
     Active Substance: RITONAVIR
     Indication: FOETAL EXPOSURE DURING PREGNANCY
     Dosage: UNK
     Route: 064
  6. LOPINAVIR [Suspect]
     Active Substance: LOPINAVIR
     Indication: FOETAL EXPOSURE DURING PREGNANCY
     Route: 064
  7. ZIDOVUDINE. [Suspect]
     Active Substance: ZIDOVUDINE
     Indication: FOETAL EXPOSURE DURING PREGNANCY
     Route: 064

REACTIONS (9)
  - Anaemia neonatal [Recovered/Resolved with Sequelae]
  - Premature baby [Unknown]
  - Foetal exposure during pregnancy [Recovered/Resolved]
  - Strabismus [Recovered/Resolved with Sequelae]
  - Burkitt^s lymphoma [Unknown]
  - Optic nerve neoplasm [Unknown]
  - Neutropenia neonatal [Recovered/Resolved with Sequelae]
  - Neoplasm malignant [Recovered/Resolved with Sequelae]
  - Retinoblastoma [Recovered/Resolved with Sequelae]

NARRATIVE: CASE EVENT DATE: 20000601
